FAERS Safety Report 5642687-1 (Version None)
Quarter: 2008Q1

REPORT INFORMATION
  Report Type: 
  Country: None (occurrence: None)
  Receive Date: 20080226
  Receipt Date: 20080212
  Transmission Date: 20080703
  Serious: Yes (Hospitalization)
  Sender: FDA-Public Use
  Company Number: E2020-02297-SPO-JP

PATIENT
  Age: 80 Year
  Sex: Female

DRUGS (4)
  1. ARICEPT [Suspect]
     Indication: DEMENTIA
     Dosage: 5 MG, 1 IN 1 D, ORAL
     Route: 048
     Dates: start: 20070801, end: 20080101
  2. ARICEPT [Suspect]
     Indication: DEMENTIA
     Dosage: 5 MG, 1 IN 1 D, ORAL
     Route: 048
     Dates: start: 20080101, end: 20080201
  3. DOGMATYL (SULPIRIDE) [Concomitant]
  4. RISPERDAL [Concomitant]

REACTIONS (3)
  - COMA [None]
  - DEMENTIA [None]
  - DISEASE PROGRESSION [None]
